FAERS Safety Report 4566139-5 (Version None)
Quarter: 2005Q1

REPORT INFORMATION
  Report Type: 
  Country: None (occurrence: None)
  Receive Date: 20050110
  Receipt Date: 20050110
  Transmission Date: 20050727
  Serious: Yes (Other)
  Sender: FDA-Public Use
  Company Number: None

PATIENT
  Sex: Female
  Weight: 149.5 kg

DRUGS (1)
  1. OXYCODONE HCL [Suspect]
     Dosage: 80 MG 2 TID
     Dates: start: 20040507

REACTIONS (2)
  - DRUG INEFFECTIVE [None]
  - NAUSEA [None]
